FAERS Safety Report 6402430-5 (Version None)
Quarter: 2009Q4

REPORT INFORMATION
  Report Type: 
  Country: None (occurrence: None)
  Receive Date: 20091015
  Receipt Date: 20091006
  Transmission Date: 20100525
  Serious: Yes (Hospitalization)
  Sender: FDA-Public Use
  Company Number: US-ELI_LILLY_AND_COMPANY-US200910001847

PATIENT
  Sex: Male

DRUGS (5)
  1. HUMULIN 70/30 [Suspect]
     Indication: TYPE 2 DIABETES MELLITUS
     Dosage: 15 U, EACH MORNING
     Dates: start: 19990101
  2. HUMULIN 70/30 [Suspect]
     Dosage: 10 U, EACH EVENING
     Dates: start: 19990101
  3. PHENOBARBITAL [Concomitant]
  4. THEOPHYLLINE [Concomitant]
  5. CARBATROL [Concomitant]

REACTIONS (3)
  - ATRIAL FIBRILLATION [None]
  - CONFUSIONAL STATE [None]
  - PNEUMONIA [None]
